FAERS Safety Report 7716640-8 (Version None)
Quarter: 2011Q3

REPORT INFORMATION
  Report Type: 
  Country: None (occurrence: None)
  Receive Date: 20110829
  Receipt Date: 20110818
  Transmission Date: 20111222
  Serious: Yes (Other)
  Sender: FDA-Public Use
  Company Number: CA-JNJFOC-20110809609

PATIENT
  Sex: Female
  Weight: 54 kg

DRUGS (2)
  1. REMICADE [Suspect]
     Indication: CROHN'S DISEASE
     Route: 042
     Dates: start: 20110301
  2. METHOTREXATE [Concomitant]
     Dosage: 2.5 PILLS
     Route: 048

REACTIONS (4)
  - CHEST PAIN [None]
  - BACK PAIN [None]
  - MUSCLE SPASMS [None]
  - CHOLELITHIASIS [None]
